FAERS Safety Report 6969076-1 (Version None)
Quarter: 2010Q3

REPORT INFORMATION
  Report Type: 
  Country: None (occurrence: None)
  Receive Date: 20100903
  Receipt Date: 20100903
  Transmission Date: 20110219
  Serious: Yes (Hospitalization, Other)
  Sender: FDA-Public Use
  Company Number: None

PATIENT
  Age: 23 Year
  Sex: Female
  Weight: 68.0396 kg

DRUGS (3)
  1. AMOXICILLIN [Suspect]
     Indication: SINUSITIS
     Dosage: 1 CAPSULE 3 TIMES DAILY PO
     Route: 048
     Dates: start: 20100527, end: 20100527
  2. DEMEROL [Concomitant]
  3. FENTANYL-75 [Concomitant]

REACTIONS (6)
  - ABDOMINAL PAIN [None]
  - FLANK PAIN [None]
  - HYPOPHAGIA [None]
  - IMPAIRED WORK ABILITY [None]
  - PRODUCT QUALITY ISSUE [None]
  - PRODUCT TAMPERING [None]
